FAERS Safety Report 5199013-4 (Version None)
Quarter: 2006Q4

REPORT INFORMATION
  Report Type: 
  Country: None (occurrence: None)
  Receive Date: 20060919
  Receipt Date: 20060731
  Transmission Date: 20070319
  Serious: No
  Sender: FDA-Public Use
  Company Number: 2006US001739

PATIENT
  Age: 60 Year
  Sex: Female

DRUGS (3)
  1. VESICARE [Suspect]
     Indication: DRUG USE FOR UNKNOWN INDICATION
     Dates: start: 20060721
  2. HORMONES NOS [Concomitant]
  3. DYAZIDE [Concomitant]

REACTIONS (1)
  - FAECES DISCOLOURED [None]
